FAERS Safety Report 5458094-0 (Version None)
Quarter: 2007Q3

REPORT INFORMATION
  Report Type: 
  Country: None (occurrence: None)
  Receive Date: 20070919
  Receipt Date: 20070823
  Transmission Date: 20080115
  Serious: No
  Sender: FDA-Public Use
  Company Number: US-JNJFOC-20070805544

PATIENT
  Age: 18 Year
  Sex: Female

DRUGS (6)
  1. INVEGA [Suspect]
     Indication: PSYCHOTIC DISORDER
  2. INVEGA [Suspect]
     Indication: BIPOLAR DISORDER
  3. TOPAMAX [Concomitant]
  4. ZOLOFT [Concomitant]
     Indication: DEPRESSION
  5. DEPAKOTE [Concomitant]
     Indication: PSYCHOTIC DISORDER
  6. DEPAKOTE [Concomitant]
     Indication: BIPOLAR DISORDER

REACTIONS (1)
  - DYSKINESIA [None]
